FAERS Safety Report 4270228-2 (Version None)
Quarter: 2004Q1

REPORT INFORMATION
  Report Type: 
  Country: None (occurrence: None)
  Receive Date: 20040113
  Receipt Date: 20040113
  Transmission Date: 20041129
  Serious: Yes (Other)
  Sender: FDA-Public Use
  Company Number: None

PATIENT
  Age: 35 Year
  Sex: Male
  Weight: 86.637 kg

DRUGS (1)
  1. PRIMAXIN [Suspect]
     Indication: PNEUMONIA
     Dosage: 500 MG Q12 H IV
     Route: 042
     Dates: start: 20031018, end: 20031102

REACTIONS (1)
  - RASH [None]
